FAERS Safety Report 6828848-4 (Version None)
Quarter: 2010Q3

REPORT INFORMATION
  Report Type: 
  Country: None (occurrence: None)
  Receive Date: 20100709
  Receipt Date: 20070221
  Transmission Date: 20110219
  Serious: No
  Sender: FDA-Public Use
  Company Number: US-PFIZER INC-2007014350

PATIENT
  Sex: Female
  Weight: 70.31 kg

DRUGS (2)
  1. CHANTIX [Suspect]
     Indication: SMOKING CESSATION THERAPY
     Dates: start: 20061001, end: 20061101
  2. WELLBUTRIN [Concomitant]

REACTIONS (3)
  - DYSGEUSIA [None]
  - GINGIVAL BLEEDING [None]
  - GINGIVAL DISORDER [None]
